FAERS Safety Report 13394023 (Version 1)
Quarter: 2017Q1

REPORT INFORMATION
  Report Type: Spontaneous
  Country: IR (occurrence: IR)
  Receive Date: 20170331
  Receipt Date: 20170331
  Transmission Date: 20170429
  Serious: Yes (Death, Life-Threatening, Hospitalization)
  Sender: FDA-Public Use
  Company Number: IR-PRINSTON PHARMACEUTICAL INC.-2017PRN00108

PATIENT
  Age: 9 Year
  Sex: Female

DRUGS (2)
  1. PAROXETINE. [Suspect]
     Active Substance: PAROXETINE
     Indication: MAJOR DEPRESSION
     Dosage: 10 MG, 1X/DAY
     Route: 065
  2. PAROXETINE. [Suspect]
     Active Substance: PAROXETINE
     Dosage: 20 MG, 1X/DAY
     Route: 065

REACTIONS (3)
  - Suicidal ideation [Not Recovered/Not Resolved]
  - Completed suicide [Fatal]
  - Suicide attempt [Not Recovered/Not Resolved]
